FAERS Safety Report 7002308-2 (Version None)
Quarter: 2010Q3

REPORT INFORMATION
  Report Type: 
  Country: None (occurrence: None)
  Receive Date: 20100920
  Receipt Date: 20100727
  Transmission Date: 20110219
  Serious: No
  Sender: FDA-Public Use
  Company Number: US-ASTRAZENECA-2010SE35003

PATIENT
  Sex: Female

DRUGS (4)
  1. SEROQUEL [Suspect]
     Indication: ANXIETY
     Route: 048
     Dates: start: 20010101, end: 20100725
  2. SEROQUEL [Suspect]
     Indication: SLEEP DISORDER
     Route: 048
     Dates: start: 20010101, end: 20100725
  3. SEROQUEL [Suspect]
     Route: 048
     Dates: start: 20100725
  4. SEROQUEL [Suspect]
     Route: 048
     Dates: start: 20100725

REACTIONS (1)
  - INCORRECT DOSE ADMINISTERED [None]
